FAERS Safety Report 5000416-9 (Version None)
Quarter: 2006Q2

REPORT INFORMATION
  Report Type: 
  Country: None (occurrence: None)
  Receive Date: 20060511
  Receipt Date: 20050926
  Transmission Date: 20061013
  Serious: Yes (Death, Hospitalization)
  Sender: FDA-Public Use
  Company Number: US-MERCK-0509USA03864

PATIENT
  Age: 62 Year
  Sex: Female
  Weight: 96 kg

DRUGS (2)
  1. VIOXX [Suspect]
     Indication: INTERVERTEBRAL DISC DEGENERATION
     Route: 048
     Dates: start: 20010601, end: 20011201
  2. VIOXX [Suspect]
     Route: 048
     Dates: start: 20011201, end: 20040401

REACTIONS (20)
  - ATRIOVENTRICULAR BLOCK COMPLETE [None]
  - AV DISSOCIATION [None]
  - BURSITIS [None]
  - CARDIAC ARREST [None]
  - CARDIAC FAILURE [None]
  - CAROTID ARTERY DISEASE [None]
  - DRUG INTOLERANCE [None]
  - DYSPEPSIA [None]
  - FIBROCYSTIC BREAST DISEASE [None]
  - GASTROOESOPHAGEAL REFLUX DISEASE [None]
  - GOITRE [None]
  - HIATUS HERNIA [None]
  - INTERVERTEBRAL DISC DISORDER [None]
  - IRRITABLE BOWEL SYNDROME [None]
  - LEUKOPENIA [None]
  - LIBIDO DECREASED [None]
  - MYOCARDIAL INFARCTION [None]
  - OSTEOARTHRITIS [None]
  - REFLUX OESOPHAGITIS [None]
  - URINARY TRACT INFECTION [None]
